FAERS Safety Report 9772237 (Version 1)
Quarter: 2013Q4

REPORT INFORMATION
  Report Type: Spontaneous
  Country: US (occurrence: US)
  Receive Date: 20131219
  Receipt Date: 20131219
  Transmission Date: 20140711
  Serious: Yes (Hospitalization, Other)
  Sender: FDA-Public Use
  Company Number: US-PFIZER INC-2013358978

PATIENT
  Age: 35 Year
  Sex: Female

DRUGS (3)
  1. AZULFIDINE [Suspect]
     Indication: ENTERITIS
     Dosage: 500 MG, 4X/DAY
     Route: 048
     Dates: start: 19721203, end: 197301
  2. AZULFIDINE [Suspect]
     Indication: CROHN^S DISEASE
  3. FERROUS SULFATE [Concomitant]
     Indication: IRON DEFICIENCY ANAEMIA
     Dosage: 300 MG, 3X/DAY
     Route: 048
     Dates: start: 19721203, end: 197301

REACTIONS (2)
  - Granulomatous liver disease [Recovering/Resolving]
  - Stevens-Johnson syndrome [Recovering/Resolving]
